FAERS Safety Report 23616329 (Version 1)
Quarter: 2024Q1

REPORT INFORMATION
  Report Type: Spontaneous
  Country: US (occurrence: None)
  Receive Date: 20240308
  Receipt Date: 20240308
  Transmission Date: 20240409
  Serious: Yes (Disabling)
  Sender: FDA-Public Use
  Company Number: None

PATIENT
  Age: 67 Year
  Sex: Female
  Weight: 63.8 kg

DRUGS (15)
  1. TECLISTAMAB [Suspect]
     Active Substance: TECLISTAMAB
     Indication: Plasma cell leukaemia
     Dosage: FREQUENCY : ONCE;?
     Route: 042
     Dates: start: 20240228, end: 20240228
  2. acetaminophen (TYLENOL) tablet 650 mg [Concomitant]
  3. acyclovir (ZOVIRAX) tablet 400 mg [Concomitant]
  4. amitriptyline (ELAVIL) tablet 25 mg [Concomitant]
  5. calcium citrate-vitamin D3 (CITRACAL + D) 315 mg-250 unit 1 tablet [Concomitant]
  6. dexAMETHasone (DECADRON) tablet 16 mg [Concomitant]
  7. diphenhydrAMINE (BENADRYL) capsule 50 mg [Concomitant]
  8. febuxostat (ULORIC) tablet 120 mg [Concomitant]
  9. guaiFENesin (MUCINEX) 12 hr tablet 600 mg [Concomitant]
  10. magnesium oxide tablet 400 mg [Concomitant]
  11. metoprolol tartrate (LOPRESSOR) tablet 25 mg [Concomitant]
  12. montelukast (SINGULAIR) tablet 10 mg [Concomitant]
  13. omeprazole (PriLOSEC) delayed release capsule 20 mg [Concomitant]
  14. polyethylene glycol 3350 (MIRALAX) packet 17 g [Concomitant]
  15. sulfamethoxazole-trimethoprim (BACTRIM DS) 800-160 mg 1 tablet [Concomitant]

REACTIONS (5)
  - Immune effector cell-associated neurotoxicity syndrome [None]
  - Off label use [None]
  - Neurotoxicity [None]
  - Therapy interrupted [None]
  - Insurance issue [None]

NARRATIVE: CASE EVENT DATE: 20240229
